FAERS Safety Report 4771457-1 (Version None)
Quarter: 2005Q3

REPORT INFORMATION
  Report Type: 
  Country: None (occurrence: None)
  Receive Date: 20050914
  Receipt Date: 20050902
  Transmission Date: 20060218
  Serious: Yes (Other)
  Sender: FDA-Public Use
  Company Number: 2005123858

PATIENT
  Sex: Female
  Weight: 79.3795 kg

DRUGS (2)
  1. CELEBREX [Suspect]
     Indication: JOINT SPRAIN
     Dosage: 400 MG (200 MG, 2 IN 1 D), ORAL
     Route: 048
  2. CELEBREX [Suspect]
     Indication: PAIN
     Dosage: 400 MG (200 MG, 2 IN 1 D), ORAL
     Route: 048

REACTIONS (3)
  - ARTHROPATHY [None]
  - BONE DISORDER [None]
  - SWELLING FACE [None]
